FAERS Safety Report 23098656 (Version 1)
Quarter: 2023Q4

REPORT INFORMATION
  Report Type: Report from Study
  Country: US (occurrence: US)
  Receive Date: 20231023
  Receipt Date: 20231023
  Transmission Date: 20240109
  Serious: Yes (Other)
  Sender: FDA-Public Use
  Company Number: US-ABBVIE-5458338

PATIENT
  Sex: Female

DRUGS (1)
  1. HUMIRA [Suspect]
     Active Substance: ADALIMUMAB
     Indication: Ankylosing spondylitis
     Dosage: CF. FORM STRENGTH: 40 MG
     Route: 058
     Dates: start: 20221012

REACTIONS (4)
  - Ehlers-Danlos syndrome [Unknown]
  - Meniscus injury [Unknown]
  - Limb operation [Unknown]
  - Ankylosing spondylitis [Unknown]
